FAERS Safety Report 8887367 (Version 4)
Quarter: 2012Q4

REPORT INFORMATION
  Report Type: Report from Study
  Country: GB (occurrence: GB)
  Receive Date: 20121105
  Receipt Date: 20121120
  Transmission Date: 20130627
  Serious: Yes (Life-Threatening, Other)
  Sender: FDA-Public Use
  Company Number: GB-AMGEN-GBRCT2012063964

PATIENT
  Age: 35 Year
  Sex: Female
  Weight: 46 kg

DRUGS (2)
  1. ETANERCEPT [Suspect]
     Indication: RHEUMATOID ARTHRITIS
     Dosage: 25 mg, 2x/week
     Dates: start: 20040903, end: 20111105
  2. HYDROXYCHLOROQUINE                 /00072603/ [Concomitant]
     Dosage: 200 mg, 1x/day
     Dates: end: 20111105

REACTIONS (2)
  - Gestational diabetes [Unknown]
  - Pregnancy [Unknown]
